FAERS Safety Report 14967022 (Version 1)
Quarter: 2018Q2

REPORT INFORMATION
  Report Type: Spontaneous
  Country: US (occurrence: US)
  Receive Date: 20180604
  Receipt Date: 20180604
  Transmission Date: 20180711
  Serious: Yes (Other)
  Sender: FDA-Public Use
  Company Number: US-ROCHE-2130002

PATIENT
  Sex: Female
  Weight: 103.51 kg

DRUGS (4)
  1. INSULIN PUMP [Concomitant]
     Active Substance: INSULIN NOS
     Indication: TYPE 1 DIABETES MELLITUS
     Dosage: ONGOING: YES
     Route: 065
  2. RITALIN [Concomitant]
     Active Substance: METHYLPHENIDATE HYDROCHLORIDE
     Indication: FATIGUE
     Dosage: ONGOING: YES
     Route: 065
  3. MAGNESIUM ACETATE [Concomitant]
     Active Substance: MAGNESIUM ACETATE
     Indication: CONSTIPATION
     Dosage: ONGOING: UNKNOWN
     Route: 065
  4. OCREVUS [Suspect]
     Active Substance: OCRELIZUMAB
     Indication: RELAPSING-REMITTING MULTIPLE SCLEROSIS
     Route: 042
     Dates: start: 20180430

REACTIONS (5)
  - Blood glucose increased [Not Recovered/Not Resolved]
  - Fatigue [Unknown]
  - Seizure [Recovered/Resolved]
  - Limb discomfort [Recovered/Resolved]
  - Malaise [Unknown]
